FAERS Safety Report 10626013 (Version 2)
Quarter: 2014Q4

REPORT INFORMATION
  Report Type: Spontaneous
  Country: BR (occurrence: BR)
  Receive Date: 20141204
  Receipt Date: 20141224
  Transmission Date: 20150529
  Serious: Yes (Other)
  Sender: FDA-Public Use
  Company Number: BR-PFIZER INC-2014329612

PATIENT
  Age: 78 Year
  Sex: Female
  Weight: 75 kg

DRUGS (13)
  1. SPIRONOLACTONE. [Concomitant]
     Active Substance: SPIRONOLACTONE
     Indication: CARDIAC DISORDER
     Dosage: 2 TABLET (UNSPECIFIED DOSE), DAILY
  2. MELOXICAM. [Concomitant]
     Active Substance: MELOXICAM
     Indication: PAIN
     Dosage: 1 TABLET (UNSPECIFIED DOSE), DAILY
  3. BETAHISTINE [Concomitant]
     Active Substance: BETAHISTINE
     Indication: LABYRINTHITIS
     Dosage: 2 TABLETS (UNSPECIFIED DOSE), DAILY
  4. ALPRAZOLAM. [Concomitant]
     Active Substance: ALPRAZOLAM
     Indication: BLOOD PRESSURE ABNORMAL
     Dosage: 1 TABLET (UNSPECIFIED DOSE), DAILY
  5. ISOSORBIDE [Concomitant]
     Active Substance: ISOSORBIDE
     Indication: CARDIAC DISORDER
     Dosage: 2 TABLETS (UNSPECIFIED DOSE), UNSPECIFIED FREQUENCY
  6. CARVEDILOL. [Concomitant]
     Active Substance: CARVEDILOL
     Indication: CHEST PAIN
     Dosage: 2 TABLETS (UNSPECIFIED DOSE), DAILY
  7. LIPITOR [Suspect]
     Active Substance: ATORVASTATIN CALCIUM
     Indication: BLOOD TRIGLYCERIDES
     Dosage: 20 MG, 2X/DAY
     Route: 048
     Dates: start: 2004
  8. LOSARTAN [Concomitant]
     Active Substance: LOSARTAN
     Indication: BLOOD PRESSURE ABNORMAL
     Dosage: 2 TABLETS (UNSPECIFIED DOSE), DAILY
  9. ^BURINAX^ [Concomitant]
     Indication: URINARY TRACT DISORDER
     Dosage: 1 TABLET (UNSPECIFIED DOSE), DAILY
  10. VENAFLON [Concomitant]
     Indication: CARDIOVASCULAR DISORDER
     Dosage: 2 TABLETS (UNSPECIFIED DOSE), DAILY
  11. VENLAFAXINE [Concomitant]
     Active Substance: VENLAFAXINE HYDROCHLORIDE
  12. DIGOXINE [Concomitant]
     Active Substance: DIGOXIN
     Indication: CARDIAC DISORDER
     Dosage: 1 TABLET (UNSPECIFIED DOSE), DAILY
  13. CAPTOPRIL. [Concomitant]
     Active Substance: CAPTOPRIL
     Indication: CARDIAC DISORDER
     Dosage: 1 TABLET (UNSPECIFIED DOSE), UNSPECIFIED FREQUENCY

REACTIONS (4)
  - Peripheral swelling [Not Recovered/Not Resolved]
  - Blindness [Unknown]
  - Eye disorder [Unknown]
  - Effusion [Unknown]

NARRATIVE: CASE EVENT DATE: 2013
